FAERS Safety Report 17483331 (Version 2)
Quarter: 2020Q1

REPORT INFORMATION
  Report Type: Spontaneous
  Country: FR (occurrence: FR)
  Receive Date: 20200302
  Receipt Date: 20200302
  Transmission Date: 20200409
  Serious: Yes (Life-Threatening, Hospitalization, Other)
  Sender: FDA-Public Use
  Company Number: FR-PFIZER INC-2020087491

PATIENT
  Age: 84 Year
  Sex: Male

DRUGS (4)
  1. GEMCITABINE HYDROCHLORIDE. [Suspect]
     Active Substance: GEMCITABINE HYDROCHLORIDE
     Dosage: UNK (SECOND INJECTION)
  2. CARBOPLATIN. [Suspect]
     Active Substance: CARBOPLATIN
     Indication: PAPILLARY THYROID CANCER
     Dosage: UNK, CYCLIC (FIRST INJECTION)
  3. CARBOPLATIN. [Suspect]
     Active Substance: CARBOPLATIN
     Dosage: UNK (SECOND INJECTION)
  4. GEMCITABINE HYDROCHLORIDE. [Suspect]
     Active Substance: GEMCITABINE HYDROCHLORIDE
     Indication: PAPILLARY THYROID CANCER
     Dosage: UNK, CYCLIC (FIRST INJECTION)

REACTIONS (10)
  - Apathy [Recovering/Resolving]
  - Haemolytic uraemic syndrome [Unknown]
  - Loss of personal independence in daily activities [Recovering/Resolving]
  - Blood albumin decreased [Recovering/Resolving]
  - Psychiatric decompensation [Recovering/Resolving]
  - Fall [Recovering/Resolving]
  - Asthenia [Recovering/Resolving]
  - Decubitus ulcer [Recovering/Resolving]
  - Psychomotor disadaptation syndrome [Recovering/Resolving]
  - Malnutrition [Recovering/Resolving]
